FAERS Safety Report 5947954-X (Version None)
Quarter: 2008Q4

REPORT INFORMATION
  Report Type: 
  Country: None (occurrence: None)
  Receive Date: 20081111
  Receipt Date: 20081009
  Transmission Date: 20090506
  Serious: No
  Sender: FDA-Public Use
  Company Number: A0751137A

PATIENT
  Sex: Female

DRUGS (3)
  1. TREXIMET [Suspect]
     Indication: MIGRAINE
     Route: 048
     Dates: start: 20081003
  2. AMITRIPTYLINE HCL [Concomitant]
  3. UNKNOWN MEDICATION [Concomitant]

REACTIONS (2)
  - HEART RATE ABNORMAL [None]
  - OVERDOSE [None]
